FAERS Safety Report 8097056-4 (Version None)
Quarter: 2012Q1

REPORT INFORMATION
  Report Type: 
  Country: None (occurrence: None)
  Receive Date: 20120131
  Receipt Date: 20120119
  Transmission Date: 20120608
  Serious: Yes (Hospitalization, Other)
  Sender: FDA-Public Use
  Company Number: JP-BRISTOL-MYERS SQUIBB COMPANY-16368805

PATIENT
  Age: 65 Year
  Sex: Female
  Weight: 45 kg

DRUGS (3)
  1. S-1 [Suspect]
     Route: 041
     Dates: start: 20040301
  2. CISPLATIN [Suspect]
  3. TAXOL [Suspect]
     Dosage: PERFORMED ON DAY 1,8,15
     Route: 041

REACTIONS (8)
  - PYLORIC STENOSIS [None]
  - ASCITES [None]
  - NEOPLASM MALIGNANT [None]
  - DIARRHOEA [None]
  - MUCOSAL INFLAMMATION [None]
  - GASTRIC CANCER [None]
  - NEOPLASM PROGRESSION [None]
  - NEUTROPENIA [None]
